FAERS Safety Report 18530940 (Version 1)
Quarter: 2020Q4

REPORT INFORMATION
  Report Type: Spontaneous
  Country: US (occurrence: US)
  Receive Date: 20201121
  Receipt Date: 20201121
  Transmission Date: 20210114
  Serious: Yes (Hospitalization)
  Sender: FDA-Public Use
  Company Number: US-TEVA-2020-US-1848928

PATIENT
  Age: 80 Year
  Sex: Female
  Weight: 90.4 kg

DRUGS (4)
  1. IPILIMUMAB [Suspect]
     Active Substance: IPILIMUMAB
     Indication: NODULAR MELANOMA
     Dosage: RECEIVED 2 DOSES
     Route: 065
     Dates: start: 201702
  2. PEMBROLIZUMAB. [Suspect]
     Active Substance: PEMBROLIZUMAB
     Indication: METASTASES TO LUNG
  3. PREDNISONE. [Suspect]
     Active Substance: PREDNISONE
     Indication: MUCOSAL INFLAMMATION
     Dosage: 40 MILLIGRAM DAILY;
     Route: 048
  4. PEMBROLIZUMAB. [Suspect]
     Active Substance: PEMBROLIZUMAB
     Indication: NODULAR MELANOMA
     Dosage: RECEIVED 6 CYCLES
     Route: 065
     Dates: start: 201803

REACTIONS (5)
  - Rash [Unknown]
  - Diarrhoea [Unknown]
  - Impaired fasting glucose [Unknown]
  - Mucosal inflammation [Recovering/Resolving]
  - Agitation [Unknown]
